FAERS Safety Report 5793940-2 (Version None)
Quarter: 2008Q2

REPORT INFORMATION
  Report Type: 
  Country: None (occurrence: None)
  Receive Date: 20080627
  Receipt Date: 20080624
  Transmission Date: 20081010
  Serious: Yes (Hospitalization)
  Sender: FDA-Public Use
  Company Number: DE-PFIZER INC-2006114592

PATIENT
  Sex: Male
  Weight: 88 kg

DRUGS (9)
  1. SU-011,248 [Suspect]
     Indication: METASTATIC RENAL CELL CARCINOMA
     Route: 048
     Dates: start: 20060529, end: 20060626
  2. SU-011,248 [Suspect]
     Route: 048
     Dates: start: 20060710, end: 20060807
  3. LYRICA [Concomitant]
     Route: 048
  4. MOVICOL [Concomitant]
     Route: 048
  5. MORPHINE SULFATE [Concomitant]
     Route: 048
  6. FUROSEMIDE [Concomitant]
     Route: 048
  7. BISPHOSPHONATES [Concomitant]
     Route: 048
  8. CLONT [Concomitant]
     Route: 048
     Dates: start: 20060810, end: 20060814
  9. CEFUROXIME [Concomitant]
     Route: 048
     Dates: start: 20060810, end: 20060814

REACTIONS (1)
  - METASTASIS [None]
